FAERS Safety Report 6275103-X (Version None)
Quarter: 2009Q3

REPORT INFORMATION
  Report Type: 
  Country: None (occurrence: None)
  Receive Date: 20090721
  Receipt Date: 20090709
  Transmission Date: 20100115
  Serious: Yes (Other)
  Sender: FDA-Public Use
  Company Number: PHHY2009CA28481

PATIENT
  Sex: Female

DRUGS (1)
  1. ZOMETA [Suspect]
     Indication: BREAST CANCER
     Dosage: 4 MG, Q 24 WEEKS
     Route: 042
     Dates: start: 20090205, end: 20090205

REACTIONS (3)
  - ABASIA [None]
  - PAIN [None]
  - TENSION [None]
